FAERS Safety Report 21456628 (Version 1)
Quarter: 2022Q4

REPORT INFORMATION
  Report Type: Report from Study
  Country: BE (occurrence: BE)
  Receive Date: 20221014
  Receipt Date: 20221014
  Transmission Date: 20230113
  Serious: Yes (Other)
  Sender: FDA-Public Use
  Company Number: BE-MYLANLABS-2022M1112691

PATIENT
  Age: 26 Year
  Sex: Male

DRUGS (6)
  1. VALPROIC ACID [Interacting]
     Active Substance: VALPROIC ACID
     Indication: Epilepsy
     Dosage: UNK
     Route: 065
  2. TOPIRAMATE [Interacting]
     Active Substance: TOPIRAMATE
     Indication: Epilepsy
     Dosage: UNK
     Route: 065
  3. TOPIRAMATE [Interacting]
     Active Substance: TOPIRAMATE
     Dosage: UNK (RESTARTED)
     Route: 065
  4. FENFLURAMINE [Interacting]
     Active Substance: FENFLURAMINE
     Indication: Epilepsy
     Dosage: UNK
     Route: 065
     Dates: start: 2014
  5. STIRIPENTOL [Interacting]
     Active Substance: STIRIPENTOL
     Indication: Epilepsy
     Dosage: UNK
     Route: 065
  6. ETHYL LOFLAZEPATE [Interacting]
     Active Substance: ETHYL LOFLAZEPATE
     Indication: Epilepsy
     Dosage: UNK
     Route: 065

REACTIONS (5)
  - Drug ineffective [Unknown]
  - Drug interaction [Recovering/Resolving]
  - Drug level changed [Recovering/Resolving]
  - Decreased appetite [Unknown]
  - Weight decreased [Unknown]

NARRATIVE: CASE EVENT DATE: 20150101
